FAERS Safety Report 10269983 (Version 3)
Quarter: 2014Q3

REPORT INFORMATION
  Report Type: Spontaneous
  Country: US (occurrence: None)
  Receive Date: 20140626
  Receipt Date: 20140911
  Transmission Date: 20150326
  Serious: Yes (Hospitalization, Other)
  Sender: FDA-Public Use
  Company Number: ADR-2014-01100

PATIENT
  Age: 41 Year
  Sex: Female

DRUGS (3)
  1. LIORESAL [Suspect]
     Active Substance: BACLOFEN
     Indication: MUSCLE SPASTICITY
  2. BUPIVACAINE [Suspect]
     Active Substance: BUPIVACAINE
     Indication: MUSCLE SPASTICITY
  3. STEROIDS [Suspect]
     Active Substance: UNSPECIFIED INGREDIENT

REACTIONS (7)
  - Implant site infection [None]
  - Immunodeficiency [None]
  - Impaired healing [None]
  - Wound infection [None]
  - Device power source issue [None]
  - Decubitus ulcer [None]
  - Neuromyelitis optica [None]
